FAERS Safety Report 6663718-6 (Version None)
Quarter: 2010Q2

REPORT INFORMATION
  Report Type: 
  Country: None (occurrence: None)
  Receive Date: 20100401
  Receipt Date: 20100329
  Transmission Date: 20101027
  Serious: Yes (Death)
  Sender: FDA-Public Use
  Company Number: CN-ROCHE-694328

PATIENT

DRUGS (3)
  1. CAPECITABINE [Suspect]
     Route: 065
  2. EPIRUBICIN [Suspect]
     Route: 065
  3. CISPLATIN [Suspect]
     Route: 065

REACTIONS (2)
  - FEBRILE NEUTROPENIA [None]
  - HEPATIC FUNCTION ABNORMAL [None]
